FAERS Safety Report 13834494 (Version 1)
Quarter: 2017Q3

REPORT INFORMATION
  Report Type: Spontaneous
  Country: FR (occurrence: FR)
  Receive Date: 20170804
  Receipt Date: 20170804
  Transmission Date: 20171127
  Serious: Yes (Hospitalization)
  Sender: FDA-Public Use
  Company Number: FR-CONCORDIA PHARMACEUTICALS INC.-GSH201708-004527

PATIENT
  Age: 85 Year
  Sex: Male

DRUGS (6)
  1. ASPEGIC NOURRISSONS [Concomitant]
     Active Substance: ASPIRIN LYSINE
  2. AMLOR [Concomitant]
     Active Substance: AMLODIPINE BESYLATE
  3. MONICOR [Concomitant]
     Active Substance: ISOSORBIDE MONONITRATE
  4. LEVOTHYROX [Concomitant]
     Active Substance: LEVOTHYROXINE
  5. PLAQUENIL [Suspect]
     Active Substance: HYDROXYCHLOROQUINE SULFATE
     Indication: PRODUCT USED FOR UNKNOWN INDICATION
     Route: 048
     Dates: start: 20170212, end: 201703
  6. INEGY [Concomitant]
     Active Substance: EZETIMIBE\SIMVASTATIN

REACTIONS (1)
  - Toxic skin eruption [Recovering/Resolving]

NARRATIVE: CASE EVENT DATE: 20170319
